FAERS Safety Report 7635692-7 (Version None)
Quarter: 2011Q3

REPORT INFORMATION
  Report Type: 
  Country: None (occurrence: None)
  Receive Date: 20110726
  Receipt Date: 20110721
  Transmission Date: 20111222
  Serious: Yes (Death, Other)
  Sender: FDA-Public Use
  Company Number: PHHY2011FR65979

PATIENT
  Sex: Female
  Weight: 72 kg

DRUGS (3)
  1. CORTICOSTEROID NOS [Concomitant]
  2. EVEROLIMUS [Suspect]
     Indication: RENAL CANCER METASTATIC
     Dosage: 10 MG, DAILY
     Dates: start: 20110125, end: 20110308
  3. OXYGEN [Concomitant]

REACTIONS (6)
  - NEOPLASM MALIGNANT [None]
  - LUNG DISORDER [None]
  - COUGH [None]
  - NEOPLASM PROGRESSION [None]
  - DYSPNOEA [None]
  - HYPOXIA [None]
